FAERS Safety Report 24802451 (Version 1)
Quarter: 2025Q1

REPORT INFORMATION
  Report Type: Spontaneous
  Country: FR (occurrence: FR)
  Receive Date: 20250103
  Receipt Date: 20250103
  Transmission Date: 20250409
  Serious: Yes (Other)
  Sender: ALEXION PHARMACEUTICALS
  Company Number: FR-BIOGEN-2024BI01295006

PATIENT

DRUGS (6)
  1. TAGRISSO [Interacting]
     Active Substance: OSIMERTINIB
     Indication: Lung neoplasm malignant
     Dosage: 80 MILLIGRAM, QD
     Route: 065
  2. TAGRISSO [Interacting]
     Active Substance: OSIMERTINIB
     Dosage: 80 MILLIGRAM, QD
     Route: 065
  3. TAGRISSO [Interacting]
     Active Substance: OSIMERTINIB
     Dosage: 80 MILLIGRAM, QD
     Route: 065
  4. TAGRISSO [Interacting]
     Active Substance: OSIMERTINIB
     Dosage: 80 MILLIGRAM, QD
     Route: 065
  5. TECFIDERA [Interacting]
     Active Substance: DIMETHYL FUMARATE
     Indication: Multiple sclerosis
     Dosage: 240 MILLIGRAM, QD
     Route: 048
  6. TECFIDERA [Interacting]
     Active Substance: DIMETHYL FUMARATE
     Dosage: 240 MILLIGRAM, QD

REACTIONS (5)
  - Lung neoplasm malignant [Unknown]
  - Multiple sclerosis [Unknown]
  - Drug interaction [Unknown]
  - Depression [Unknown]
  - Product use issue [Unknown]
